FAERS Safety Report 8396314-3 (Version None)
Quarter: 2012Q2

REPORT INFORMATION
  Report Type: 
  Country: None (occurrence: None)
  Receive Date: 20120530
  Receipt Date: 20120518
  Transmission Date: 20120825
  Serious: Yes (Hospitalization, Other)
  Sender: FDA-Public Use
  Company Number: US-ELI_LILLY_AND_COMPANY-US201205007136

PATIENT
  Age: 63 Year
  Sex: Female

DRUGS (3)
  1. FORTEO [Suspect]
     Indication: OSTEOPOROSIS
     Dosage: 20 U, QD
  2. ZOCOR [Concomitant]
     Dosage: UNK
  3. VIMPAT [Concomitant]
     Dosage: UNK

REACTIONS (2)
  - HOSPITALISATION [None]
  - CONVULSION [None]
